FAERS Safety Report 16916411 (Version 1)
Quarter: 2019Q4

REPORT INFORMATION
  Report Type: Spontaneous
  Country: FR (occurrence: FR)
  Receive Date: 20191014
  Receipt Date: 20191014
  Transmission Date: 20200122
  Serious: Yes (Hospitalization)
  Sender: FDA-Public Use
  Company Number: FR-JNJFOC-20191007662

PATIENT
  Age: 30 Year
  Sex: Female
  Weight: 81 kg

DRUGS (3)
  1. KIVEXA [Suspect]
     Active Substance: ABACAVIR SULFATE\LAMIVUDINE
     Indication: HIV INFECTION
     Route: 048
     Dates: start: 20190911, end: 20190913
  2. EURARTESIM [Suspect]
     Active Substance: ARTENIMOL\PIPERAQUINE PHOSPHATE
     Indication: PLASMODIUM FALCIPARUM INFECTION
     Dosage: 320 MG/40 MG
     Route: 048
     Dates: start: 20190910, end: 20190912
  3. EDURANT [Suspect]
     Active Substance: RILPIVIRINE HYDROCHLORIDE
     Indication: HIV INFECTION
     Route: 048
     Dates: start: 20190911, end: 20190913

REACTIONS (2)
  - Condition aggravated [Recovering/Resolving]
  - Neutropenia [Recovering/Resolving]

NARRATIVE: CASE EVENT DATE: 20190911
